FAERS Safety Report 4960321-0 (Version None)
Quarter: 2006Q2

REPORT INFORMATION
  Report Type: 
  Country: None (occurrence: None)
  Receive Date: 20060403
  Receipt Date: 20060322
  Transmission Date: 20061013
  Serious: Yes (Other)
  Sender: FDA-Public Use
  Company Number: PHEH2006US03820

PATIENT
  Age: 71 Year
  Sex: Female

DRUGS (1)
  1. FEMARA [Suspect]
     Indication: BREAST CANCER
     Dosage: 2.5 MG, QD
     Route: 048
     Dates: start: 20040101, end: 20060316

REACTIONS (3)
  - ASPIRATION BIOPSY [None]
  - MALIGNANT BREAST LUMP REMOVAL [None]
  - MALIGNANT NEOPLASM PROGRESSION [None]
